FAERS Safety Report 8996256 (Version 2)
Quarter: 2013Q2

REPORT INFORMATION
  Report Type: Report from Study
  Country: DE (occurrence: DE)
  Receive Date: 20130103
  Receipt Date: 20130404
  Transmission Date: 20140414
  Serious: Yes (Death)
  Sender: FDA-Public Use
  Company Number: DE-ABBOTT-13P-062-1031080-00

PATIENT
  Age: 74 Year
  Sex: Male

DRUGS (1)
  1. ENANTONE [Suspect]
     Indication: PROSTATE CANCER
     Route: 058
     Dates: start: 20120910, end: 20120910

REACTIONS (1)
  - Death [Fatal]
